FAERS Safety Report 7510156-X (Version None)
Quarter: 2011Q2

REPORT INFORMATION
  Report Type: 
  Country: None (occurrence: None)
  Receive Date: 20110527
  Receipt Date: 20110516
  Transmission Date: 20111010
  Serious: Yes (Hospitalization, Other)
  Sender: FDA-Public Use
  Company Number: US-BAYER-201039786NA

PATIENT
  Age: 37 Year
  Sex: Female
  Weight: 63.492 kg

DRUGS (6)
  1. CARDIZEM [Concomitant]
     Indication: HYPERTENSION
     Dosage: 360 MG, UNK
     Route: 048
     Dates: start: 20030101
  2. XANAX [Concomitant]
     Indication: ANXIETY
     Dosage: 1 MG, UNK
     Route: 048
     Dates: start: 20030101
  3. HYDROCODONE BITARTRATE [Concomitant]
     Indication: PAIN
  4. LORTAB [Concomitant]
  5. YASMIN [Suspect]
     Indication: PRODUCT USED FOR UNKNOWN INDICATION
     Route: 048
     Dates: start: 20031101, end: 20100401
  6. IBUPROFEN [Concomitant]

REACTIONS (4)
  - CHOLECYSTITIS [None]
  - CHOLELITHIASIS [None]
  - ABDOMINAL PAIN UPPER [None]
  - GALLBLADDER DISORDER [None]
